FAERS Safety Report 4360789-7 (Version None)
Quarter: 2004Q2

REPORT INFORMATION
  Report Type: 
  Country: None (occurrence: None)
  Receive Date: 20040517
  Receipt Date: 20040507
  Transmission Date: 20050107
  Serious: Yes (Other)
  Sender: FDA-Public Use
  Company Number: 2004204763BE

PATIENT
  Age: 76 Year
  Sex: Male
  Weight: 69 kg

DRUGS (3)
  1. ALDACTONE [Suspect]
     Indication: HYPERTENSION
     Dosage: 25 MG, QD, ORAL
     Route: 048
     Dates: start: 20000101, end: 20030601
  2. PRAXILENE (NAFTIDROFURYL OXALATE) [Concomitant]
  3. LENDORM [Concomitant]

REACTIONS (2)
  - HAEMORRHAGE URINARY TRACT [None]
  - THROMBOCYTOPENIA [None]
